FAERS Safety Report 18062848 (Version 6)
Quarter: 2022Q3

REPORT INFORMATION
  Report Type: Spontaneous
  Country: DE (occurrence: DE)
  Receive Date: 20200724
  Receipt Date: 20220926
  Transmission Date: 20221027
  Serious: Yes (Hospitalization, Other)
  Sender: FDA-Public Use
  Company Number: DE-002147023-NVSC2018DE005246

PATIENT
  Age: 55 Year
  Sex: Male
  Weight: 83 kg

DRUGS (65)
  1. AMLODIPINE BESYLATE [Suspect]
     Active Substance: AMLODIPINE BESYLATE
     Indication: Hypertension
     Dosage: 10 MG, DAILY, 5 MG TWICE A DAY (MORNING, EVENING)
     Route: 065
  2. VERAPAMIL [Suspect]
     Active Substance: VERAPAMIL HYDROCHLORIDE
     Dosage: UNK
  3. CAPTOPRIL [Suspect]
     Active Substance: CAPTOPRIL
     Indication: Hypertension
     Dosage: 100 MG, QD
     Route: 065
     Dates: end: 201112
  4. HYDROCHLOROTHIAZIDE [Suspect]
     Active Substance: HYDROCHLOROTHIAZIDE
     Dosage: UNK
     Route: 065
  5. METOPROLOL [Suspect]
     Active Substance: METOPROLOL
     Indication: Essential tremor
     Dosage: UNK
     Route: 065
     Dates: start: 201203, end: 201203
  6. MOXONIDINE [Suspect]
     Active Substance: MOXONIDINE
     Indication: Hypertension
     Dosage: UNK
     Route: 065
  7. PROPRANOLOL [Suspect]
     Active Substance: PROPRANOLOL HYDROCHLORIDE
     Indication: Essential tremor
     Dosage: UNK
     Route: 065
     Dates: start: 201203, end: 201203
  8. HYDROCHLOROTHIAZIDE\VALSARTAN [Suspect]
     Active Substance: HYDROCHLOROTHIAZIDE\VALSARTAN
     Indication: Hypertension
     Dosage: 160/25 MG
     Route: 065
  9. VALSARTAN [Suspect]
     Active Substance: VALSARTAN
     Indication: Hypertension
     Dosage: 0.5 DF, (80 MG) BID (MORNING, NOON)
     Route: 065
     Dates: start: 20120313, end: 20180709
  10. VALSARTAN [Suspect]
     Active Substance: VALSARTAN
     Dosage: 160 MG, DAILY, DIVIDED TABLET OF 160 MG, EVERY DAY
     Route: 065
     Dates: start: 2013, end: 2013
  11. VALSARTAN [Suspect]
     Active Substance: VALSARTAN
     Dosage: 160 MG, DAILY, 1 DF, (160 MG) EVERY DAY IN THE EVENING
     Route: 065
     Dates: start: 20140710, end: 20181217
  12. VALSARTAN [Suspect]
     Active Substance: VALSARTAN
     Dosage: 80 MG, 2X/DAY, 1 DF, (160 MG) EVERY DAY IN THE EVENING
     Route: 065
     Dates: start: 20120313, end: 20180709
  13. VALSARTAN [Suspect]
     Active Substance: VALSARTAN
     Dosage: 80 MG, 4X/DAY
  14. VALSARTAN [Suspect]
     Active Substance: VALSARTAN
     Dosage: 2X/DAY, 0.5 DF, (80 MG) TWICE A DAY (MORNING, NOON)
     Route: 065
     Dates: start: 20140710, end: 20181217
  15. VALSARTAN [Suspect]
     Active Substance: VALSARTAN
     Dosage: 320 MG, EVERY DAY
     Route: 065
     Dates: start: 2013, end: 2013
  16. VALSARTAN [Suspect]
     Active Substance: VALSARTAN
     Indication: Hypertension
     Dosage: 80 MG, TWICE DAILY (MORNING, NOON)
     Route: 065
  17. VALSARTAN [Suspect]
     Active Substance: VALSARTAN
     Dosage: 80 MG, 4X/DAY
     Route: 065
     Dates: start: 201410
  18. VALSARTAN [Suspect]
     Active Substance: VALSARTAN
     Dosage: 80 MG, 4X/DAY
     Route: 065
  19. VALSARTAN [Suspect]
     Active Substance: VALSARTAN
     Dosage: 1 DF, (80 MG) QID
     Route: 065
     Dates: start: 201410
  20. VALSARTAN [Suspect]
     Active Substance: VALSARTAN
     Dosage: 160 MG, 1X/DAY (IN THE EVENING)
     Route: 065
  21. VALSARTAN [Suspect]
     Active Substance: VALSARTAN
     Dosage: 80 MG, 2X/DAY (MORNING AND EVENING)
     Route: 065
  22. VALSARTAN [Suspect]
     Active Substance: VALSARTAN
     Dosage: 0.5 DF, (160 MG) TWICE A DAY (MORNING, NOON)
     Route: 065
  23. VALSARTAN [Suspect]
     Active Substance: VALSARTAN
     Dosage: 160 MG, DAILY, 80 MG, TWICE A DAY (MORNING AND EVENING)
     Route: 065
  24. VALSARTAN [Suspect]
     Active Substance: VALSARTAN
     Dosage: 1 DF, (160 MG) TWICE A DAY  MORNING, EVENING)
     Route: 065
  25. VALSARTAN [Suspect]
     Active Substance: VALSARTAN
     Dosage: 160 MG, QD
     Route: 065
     Dates: start: 20120303, end: 20180709
  26. VALSARTAN [Suspect]
     Active Substance: VALSARTAN
     Dosage: 160 MG, QD
     Route: 065
     Dates: start: 20120710, end: 20181217
  27. VALSARTAN [Suspect]
     Active Substance: VALSARTAN
     Dosage: 160 MG, QD
     Route: 065
     Dates: start: 2013
  28. VALSARTAN [Suspect]
     Active Substance: VALSARTAN
     Dosage: 0.5 DF, (160 MG) BID (MORNING, NOON)
     Route: 065
  29. VALSARTAN [Suspect]
     Active Substance: VALSARTAN
     Dosage: 160 MG, IN THE EVENING
     Route: 065
  30. VALSARTAN [Suspect]
     Active Substance: VALSARTAN
     Dosage: 320 MG, QD
     Route: 065
     Dates: start: 201410
  31. VALSARTAN [Suspect]
     Active Substance: VALSARTAN
     Dosage: 320 MG, QD
     Route: 065
     Dates: start: 2014, end: 2014
  32. VALSARTAN [Suspect]
     Active Substance: VALSARTAN
     Dosage: 320 MG, QD
     Route: 065
  33. VERAPAMIL HYDROCHLORIDE [Suspect]
     Active Substance: VERAPAMIL HYDROCHLORIDE
     Dosage: UNK
     Route: 065
  34. HYDROCHLOROTHIAZIDE\VALSARTAN [Suspect]
     Active Substance: HYDROCHLOROTHIAZIDE\VALSARTAN
     Dosage: UNK
     Route: 065
  35. CLOPIDOGREL [Concomitant]
     Active Substance: CLOPIDOGREL BISULFATE
     Indication: Coronary artery disease
     Dosage: 75 MG, QD (MORNING)
     Route: 065
     Dates: start: 201410
  36. CLOPIDOGREL [Concomitant]
     Active Substance: CLOPIDOGREL BISULFATE
     Dosage: 75 MG, 1X/DAY
     Dates: start: 2015
  37. CLOPIDOGREL [Concomitant]
     Active Substance: CLOPIDOGREL BISULFATE
     Dosage: 75 UNK
     Route: 065
  38. PANTOPRAZOLE SODIUM [Concomitant]
     Active Substance: PANTOPRAZOLE SODIUM
     Indication: Abdominal discomfort
     Dosage: 20 MG, 1X/DAY (WHEN TAKING IBUPROFEN)
     Dates: start: 2014
  39. PANTOPRAZOLE SODIUM [Concomitant]
     Active Substance: PANTOPRAZOLE SODIUM
     Dosage: 20 MG, EVERY DAY
     Route: 065
  40. HYDROCHLOROTHIAZIDE [Concomitant]
     Active Substance: HYDROCHLOROTHIAZIDE
     Dosage: (1-0-0)
  41. BETABLOCK [Concomitant]
     Dosage: UNK
     Route: 065
  42. TORSEMIDE [Concomitant]
     Active Substance: TORSEMIDE
     Indication: Hypertension
     Dosage: 1 DOSAGE FORM, QD OF 5 MG EVENING
     Route: 065
     Dates: start: 2018, end: 2018
  43. TORSEMIDE [Concomitant]
     Active Substance: TORSEMIDE
     Indication: Hypertension
     Dosage: 1/2 MG, 2X/DAY, 0.5 DOSAGE FORM, TWICE A DAY OF 5MG MORNING, NOON
     Route: 065
     Dates: start: 1998, end: 2014
  44. TORSEMIDE [Concomitant]
     Active Substance: TORSEMIDE
     Dosage: 5MG , 1X / DAY
     Dates: start: 1998, end: 2014
  45. TORSEMIDE [Concomitant]
     Active Substance: TORSEMIDE
     Dosage: 5 MG, 1X/DAY
     Route: 065
     Dates: start: 2014
  46. TORSEMIDE [Concomitant]
     Active Substance: TORSEMIDE
     Dosage: 5 MG, 1X/DAY
     Dates: start: 201410
  47. TORSEMIDE [Concomitant]
     Active Substance: TORSEMIDE
     Dosage: 1 DOSAGE FORM OF 10 MG
     Route: 065
     Dates: start: 1998
  48. TORSEMIDE [Concomitant]
     Active Substance: TORSEMIDE
     Dosage: 1 DOSAGE FORM, EVERY DAY
     Route: 065
  49. TORSEMIDE [Concomitant]
     Active Substance: TORSEMIDE
     Dosage: 5 MG, DAILY, 1 DOSAGE FORM, EVERY DAY OF 5 MG MORNING
     Route: 065
     Dates: start: 2014
  50. TORSEMIDE [Concomitant]
     Active Substance: TORSEMIDE
     Dosage: 5 MG, 2X/DAY, 1 DOSAGE FORM, TWICE A DAY OF 5 MG MORNING AND EVENING
     Route: 065
  51. TORSEMIDE [Concomitant]
     Active Substance: TORSEMIDE
     Dosage: 5 MG, EVERY DAY, EVENING
     Route: 065
     Dates: start: 201409
  52. CANDESARTAN [Concomitant]
     Active Substance: CANDESARTAN
     Dosage: 1 DOSAGE FORM, QD OF 16 MG EVENING
     Route: 065
  53. CANDESARTAN [Concomitant]
     Active Substance: CANDESARTAN
     Dosage: 0.5 DOSAGE FORM, BID OF 16 MG MORNING , NOON
     Route: 065
  54. HYDROCHLOROTHIAZIDE\LISINOPRIL [Concomitant]
     Active Substance: HYDROCHLOROTHIAZIDE\LISINOPRIL
     Indication: Hypertension
     Dosage: EVERY DAY
     Route: 065
     Dates: start: 1998
  55. HYDROCHLOROTHIAZIDE\LISINOPRIL [Concomitant]
     Active Substance: HYDROCHLOROTHIAZIDE\LISINOPRIL
     Dosage: 0.5 DOSAGE FORM, TWICE A DAY
     Route: 065
  56. IBUPROFEN [Concomitant]
     Active Substance: IBUPROFEN
     Indication: Intervertebral disc protrusion
     Dosage: 600 MG, BID IN THE MORNING AND IN THE EVENING AS REQUIRED
     Dates: start: 2018, end: 2018
  57. NEBIVOLOL [Concomitant]
     Active Substance: NEBIVOLOL
     Indication: Product used for unknown indication
     Dosage: UNK
     Route: 065
     Dates: start: 201112
  58. FELODIPINE [Concomitant]
     Active Substance: FELODIPINE
     Indication: Hypertension
     Dosage: 1 DOSAGE FORM, BID OF 5 MG MORNING, EVENING
     Route: 065
  59. KERLONE [Concomitant]
     Active Substance: BETAXOLOL HYDROCHLORIDE
     Dosage: 20 MG, DAILY (1 DOSAGE FORM, EVERY DAY OF 20 MG MORNING)
     Route: 065
  60. KERLONE [Concomitant]
     Active Substance: BETAXOLOL HYDROCHLORIDE
     Dosage: 10 MG, DAILY (1 DOSAGE FORM, EVERY DAY OF 10 MG MORNING)
     Route: 065
     Dates: end: 201112
  61. KERLONE [Concomitant]
     Active Substance: BETAXOLOL HYDROCHLORIDE
     Dosage: 2X/DAY (0.5 DOSAGE FORM IN MORNING)
     Route: 065
  62. BISOPROLOL [Concomitant]
     Active Substance: BISOPROLOL
     Indication: Hypertension
     Dosage: 2.5 MG, 2X/DAY (0.5 DOSAGE FORM, TWICE A DAY OF 5 MG MORNING, NOON)
     Route: 065
  63. BISOPROLOL [Concomitant]
     Active Substance: BISOPROLOL
     Dosage: 5 MG, 1X/DAY
  64. BISOPROLOL [Concomitant]
     Active Substance: BISOPROLOL
     Dosage: 5 MG, EVERY DAY (MORNING)
     Route: 065
     Dates: start: 201410
  65. BISOPROLOL [Concomitant]
     Active Substance: BISOPROLOL
     Dosage: 1 DOSAGE FORM, QD OF 5 MG MORNING
     Route: 065
     Dates: start: 201410

REACTIONS (125)
  - Orthostatic intolerance [Recovered/Resolved]
  - Peroneal nerve injury [Unknown]
  - Fatigue [Unknown]
  - Obstructive sleep apnoea syndrome [Unknown]
  - Dry mouth [Unknown]
  - Vertigo [Recovered/Resolved]
  - Nausea [Recovered/Resolved]
  - Facet joint syndrome [Unknown]
  - Peroneal nerve palsy [Unknown]
  - Peroneal nerve palsy [Unknown]
  - Pain [Recovered/Resolved]
  - Pain [Recovering/Resolving]
  - Pain in extremity [Recovering/Resolving]
  - Aortic valve incompetence [Unknown]
  - Sinus headache [Unknown]
  - Facial pain [Unknown]
  - Coronary artery disease [Unknown]
  - Coronary artery disease [Unknown]
  - Arteriosclerosis coronary artery [Unknown]
  - Coronary artery stenosis [Unknown]
  - Back pain [Recovered/Resolved]
  - Asthenia [Unknown]
  - Headache [Unknown]
  - Dyspnoea exertional [Unknown]
  - Intervertebral disc disorder [Unknown]
  - Intervertebral disc protrusion [Unknown]
  - Restless legs syndrome [Unknown]
  - Dyspnoea at rest [Unknown]
  - Extensor plantar response [Unknown]
  - Asthenia [Unknown]
  - Fatigue [Recovered/Resolved]
  - Cardiopulmonary exercise test abnormal [Unknown]
  - Vestibular neuronitis [Recovered/Resolved]
  - Asthenia [Not Recovered/Not Resolved]
  - Tricuspid valve incompetence [Unknown]
  - Skin discolouration [Unknown]
  - Myosclerosis [Unknown]
  - Neurogenic shock [Unknown]
  - Pulmonary valve incompetence [Unknown]
  - Leukopenia [Unknown]
  - Osteochondrosis [Unknown]
  - Oesophageal candidiasis [Unknown]
  - Cardiovascular insufficiency [Unknown]
  - Angina pectoris [Unknown]
  - Patellofemoral pain syndrome [Unknown]
  - Factor VII deficiency [Unknown]
  - Abdominal pain [Unknown]
  - Duodenitis [Unknown]
  - Peripheral venous disease [Unknown]
  - Memory impairment [Recovering/Resolving]
  - Hernia [Unknown]
  - Dyspnoea [Unknown]
  - Head discomfort [Unknown]
  - Dizziness [Unknown]
  - Migraine with aura [Recovered/Resolved]
  - Actinic keratosis [Recovered/Resolved]
  - Fear of disease [Not Recovered/Not Resolved]
  - Skin erosion [Unknown]
  - Solar lentigo [Unknown]
  - Diverticulum [Unknown]
  - Quality of life decreased [Unknown]
  - Cognitive disorder [Recovered/Resolved]
  - Melanocytic naevus [Unknown]
  - Merycism [Unknown]
  - Headache [Unknown]
  - Wound [Unknown]
  - Chest discomfort [Unknown]
  - Neurofibroma [Unknown]
  - Haematoma [Unknown]
  - Meniscus injury [Unknown]
  - Chondropathy [Unknown]
  - Stasis dermatitis [Unknown]
  - Helicobacter test positive [Unknown]
  - Drug intolerance [Unknown]
  - Cervicobrachial syndrome [Unknown]
  - Spinal pain [Recovering/Resolving]
  - Migraine [Unknown]
  - Joint dislocation [Unknown]
  - Nervous system disorder [Unknown]
  - Abdominal discomfort [Unknown]
  - Gait disturbance [Unknown]
  - Oedema peripheral [Unknown]
  - Hypertension [Not Recovered/Not Resolved]
  - Arthralgia [Recovering/Resolving]
  - Bursitis [Unknown]
  - Spinal osteoarthritis [Unknown]
  - Neoplasm skin [Unknown]
  - Dysphagia [Unknown]
  - Actinic keratosis [Recovered/Resolved]
  - Headache [Unknown]
  - Mental disorder [Not Recovered/Not Resolved]
  - Sacroiliac joint dysfunction [Unknown]
  - Abdominal pain [Unknown]
  - Gait disturbance [Unknown]
  - Periarthritis [Unknown]
  - Inflammation [Unknown]
  - Arthritis [Unknown]
  - Oesophagitis [Unknown]
  - Benign prostatic hyperplasia [Unknown]
  - Nocturia [Unknown]
  - Disturbance in attention [Unknown]
  - Oedema peripheral [Unknown]
  - Meniscopathy [Unknown]
  - Neuralgia [Unknown]
  - Neuralgia [Unknown]
  - Musculoskeletal stiffness [Unknown]
  - Knee deformity [Unknown]
  - Peripheral swelling [Unknown]
  - Rotator cuff syndrome [Unknown]
  - Osteoarthritis [Unknown]
  - Hypercholesterolaemia [Unknown]
  - Back pain [Recovering/Resolving]
  - Drug hypersensitivity [Unknown]
  - Aortic dilatation [Unknown]
  - Meniscus injury [Unknown]
  - Chondropathy [Unknown]
  - Headache [Unknown]
  - Joint hyperextension [Unknown]
  - Pelvic misalignment [Unknown]
  - Monoparesis [Unknown]
  - Product use in unapproved indication [Unknown]
  - Joint dislocation [Unknown]
  - Neck pain [Unknown]
  - Nerve injury [Unknown]
  - Dyspnoea exertional [Unknown]

NARRATIVE: CASE EVENT DATE: 20050101
